FAERS Safety Report 8273430-8 (Version None)
Quarter: 2012Q2

REPORT INFORMATION
  Report Type: 
  Country: None (occurrence: None)
  Receive Date: 20120411
  Receipt Date: 20120331
  Transmission Date: 20120825
  Serious: Yes (Hospitalization, Other)
  Sender: FDA-Public Use
  Company Number: PHHY2012DE028399

PATIENT
  Sex: Female
  Weight: 76 kg

DRUGS (14)
  1. VASODILATORS USED IN CARDIAC DISEASES [Concomitant]
     Dosage: UNK
     Dates: end: 20090407
  2. DIGIMERCK [Suspect]
     Indication: ATRIAL FIBRILLATION
     Dosage: 1 DF, PER DAY
     Route: 048
     Dates: start: 20061214
  3. DOGMATIL [Suspect]
     Indication: DEPRESSION
     Dosage: 0.25 DF, PER DAY
     Dates: start: 20080421
  4. CALCIUM CHANNEL BLOCKERS [Concomitant]
     Dosage: UNK
     Dates: end: 20100519
  5. NITRATES [Concomitant]
  6. METFORMIN HCL [Suspect]
     Indication: DIABETES MELLITUS
     Dosage: 2 DF, DAILY
     Route: 048
     Dates: start: 20110823
  7. LEVOTHYROXINE SODIUM [Suspect]
     Indication: THYROID DISORDER
     Dosage: 1 DF, PER DAY
     Route: 048
     Dates: start: 20110927
  8. INSPRA [Suspect]
     Indication: CARDIAC FAILURE
     Dosage: 1 DF, PER DAY
     Route: 048
     Dates: start: 20050704
  9. ACE INHIBITORS [Concomitant]
  10. OTHER ANTIHYPERTENSIVES [Concomitant]
     Dosage: UNK
     Dates: end: 20090728
  11. RASILEZ [Suspect]
     Indication: HYPERTENSION
     Dosage: 1 DF/DAY
     Route: 048
     Dates: start: 20081022
  12. METOPROLOL SUCCINATE [Suspect]
     Indication: HYPERTENSION
     Dosage: 0.5 DF, PER DAY
     Route: 048
     Dates: start: 20070403
  13. DIGIMERCK [Suspect]
     Indication: CARDIAC FAILURE
  14. DIURETICS [Concomitant]
     Dosage: UNK

REACTIONS (3)
  - TYPE 2 DIABETES MELLITUS [None]
  - TRANSIENT ISCHAEMIC ATTACK [None]
  - THYROID DISORDER [None]
